FAERS Safety Report 13663779 (Version 1)
Quarter: 2017Q2

REPORT INFORMATION
  Report Type: Report from Study
  Country: US (occurrence: US)
  Receive Date: 20170619
  Receipt Date: 20170619
  Transmission Date: 20170830
  Serious: Yes (Hospitalization, Other)
  Sender: FDA-Public Use
  Company Number: US-GILEAD-2017-0278018

PATIENT
  Age: 78 Year
  Sex: Male

DRUGS (11)
  1. TYVASO [Concomitant]
     Active Substance: TREPROSTINIL
  2. TAMSULOSIN [Concomitant]
     Active Substance: TAMSULOSIN
  3. DIGOXIN. [Concomitant]
     Active Substance: DIGOXIN
  4. IRON [Concomitant]
     Active Substance: IRON
  5. AMBRISENTAN [Suspect]
     Active Substance: AMBRISENTAN
     Indication: PULMONARY HYPERTENSION
     Dosage: 10 MG, QD
     Route: 065
  6. KLOR-CON [Concomitant]
     Active Substance: POTASSIUM CHLORIDE
  7. WARFARIN [Concomitant]
     Active Substance: WARFARIN
  8. FUROSEMIDE. [Concomitant]
     Active Substance: FUROSEMIDE
  9. OMEPRAZOLE. [Concomitant]
     Active Substance: OMEPRAZOLE
  10. VITAMIN D                          /00107901/ [Concomitant]
     Active Substance: ERGOCALCIFEROL
  11. ADCIRCA [Concomitant]
     Active Substance: TADALAFIL

REACTIONS (4)
  - Large intestinal haemorrhage [Unknown]
  - Haemoglobin decreased [Unknown]
  - Dyspnoea [Unknown]
  - Oesophageal haemorrhage [Unknown]
